FAERS Safety Report 20512737 (Version 1)
Quarter: 2022Q1

REPORT INFORMATION
  Report Type: Spontaneous
  Country: US (occurrence: None)
  Receive Date: 20220224
  Receipt Date: 20220224
  Transmission Date: 20220424
  Serious: Yes (unspecified)
  Sender: FDA-Public Use
  Company Number: None

PATIENT
  Age: 52 Year
  Sex: Female

DRUGS (5)
  1. RITUXAN [Suspect]
     Active Substance: RITUXIMAB
     Indication: Multiple sclerosis relapse
     Dosage: OTHER FREQUENCY : ONE TIME INFUSION;?
     Route: 041
     Dates: start: 20220223, end: 20220223
  2. Duiphenhydramine 25 mg IVP [Concomitant]
     Dates: start: 20220223, end: 20220223
  3. Hydrocortisone 100 mg [Concomitant]
     Dates: start: 20220223, end: 20220223
  4. Hydrocortisone 100 mg [Concomitant]
     Dates: start: 20220223, end: 20220223
  5. FAMOTIDINE [Concomitant]
     Active Substance: FAMOTIDINE
     Dates: start: 20220223, end: 20220223

REACTIONS (4)
  - Cough [None]
  - Throat irritation [None]
  - Infusion related reaction [None]
  - Therapy interrupted [None]

NARRATIVE: CASE EVENT DATE: 20220223
